FAERS Safety Report 15696373 (Version 2)
Quarter: 2019Q3

REPORT INFORMATION
  Report Type: Report from Study
  Country: CA (occurrence: CA)
  Receive Date: 20181206
  Receipt Date: 20190702
  Transmission Date: 20191004
  Serious: Yes (Hospitalization)
  Sender: FDA-Public Use
  Company Number: CA-HLSUS-2018-CA-001645

PATIENT
  Age: 38 Year
  Sex: Female

DRUGS (3)
  1. CLOZAPINE. [Suspect]
     Active Substance: CLOZAPINE
     Indication: SCHIZOAFFECTIVE DISORDER
     Dosage: 125MG 1 EVERY 1 DAY
     Route: 048
     Dates: start: 20180312, end: 20180406
  2. LITHIUM. [Concomitant]
     Active Substance: LITHIUM
     Indication: PRODUCT USED FOR UNKNOWN INDICATION
     Route: 065
     Dates: start: 2015, end: 20180406
  3. SODIUM VALPROATE [Concomitant]
     Active Substance: VALPROATE SODIUM
     Indication: PRODUCT USED FOR UNKNOWN INDICATION
     Route: 048
     Dates: start: 20080122, end: 20180406

REACTIONS (9)
  - C-reactive protein increased [Unknown]
  - Hypereosinophilic syndrome [Recovered/Resolved]
  - Myocarditis [Recovered/Resolved]
  - White blood cell count increased [Unknown]
  - Hepatic failure [Recovered/Resolved]
  - Gastroenteritis [Unknown]
  - Renal failure [Recovered/Resolved]
  - Pallor [Unknown]
  - Troponin increased [Unknown]

NARRATIVE: CASE EVENT DATE: 20180404
